FAERS Safety Report 6949031-8 (Version None)
Quarter: 2010Q3

REPORT INFORMATION
  Report Type: 
  Country: None (occurrence: None)
  Receive Date: 20100828
  Receipt Date: 20091130
  Transmission Date: 20110219
  Serious: No
  Sender: FDA-Public Use
  Company Number: US-ABBOTT-09P-163-0612755-00

PATIENT
  Sex: Female
  Weight: 86.26 kg

DRUGS (7)
  1. NIASPAN [Suspect]
     Indication: BLOOD TRIGLYCERIDES INCREASED
     Route: 048
     Dates: start: 20091123, end: 20091125
  2. LOPRESSOR [Concomitant]
     Indication: CARDIAC DISORDER
  3. BENICAR [Concomitant]
     Indication: CARDIAC DISORDER
  4. PLAVIX [Concomitant]
     Indication: CARDIAC DISORDER
  5. PREVACID [Concomitant]
     Indication: GASTROOESOPHAGEAL REFLUX DISEASE
  6. PRAVACHOL [Concomitant]
     Indication: BLOOD CHOLESTEROL
  7. FLONASE [Concomitant]
     Indication: PRODUCT USED FOR UNKNOWN INDICATION

REACTIONS (2)
  - FLUSHING [None]
  - PRURITUS [None]
